FAERS Safety Report 18595669 (Version 2)
Quarter: 2020Q4

REPORT INFORMATION
  Report Type: Spontaneous
  Country: US (occurrence: US)
  Receive Date: 20201209
  Receipt Date: 20201214
  Transmission Date: 20210114
  Serious: No
  Sender: FDA-Public Use
  Company Number: US-PFIZER INC-2020477133

PATIENT
  Age: 80 Year
  Sex: Female
  Weight: 92.53 kg

DRUGS (1)
  1. FLECTOR [Suspect]
     Active Substance: DICLOFENAC EPOLAMINE
     Indication: PAIN
     Dosage: 1 DF (ONE PATCH ONCE A DAY, SOMETIMES TWICE A DAY)

REACTIONS (2)
  - Pain [Unknown]
  - Expired product administered [Unknown]
